FAERS Safety Report 20050128 (Version 1)
Quarter: 2021Q4

REPORT INFORMATION
  Report Type: Spontaneous
  Country: DE (occurrence: DE)
  Receive Date: 20211109
  Receipt Date: 20211109
  Transmission Date: 20220303
  Serious: Yes (Other)
  Sender: FDA-Public Use
  Company Number: DE-hameln pharma gmbh-ROC021-005

PATIENT
  Age: 10 Week
  Sex: Female
  Weight: 3 kg

DRUGS (2)
  1. ROCURONIUM [Suspect]
     Active Substance: ROCURONIUM BROMIDE
     Indication: Neuromuscular blockade
     Dosage: 5 MILLIGRAM, TOTAL
     Route: 065
  2. SEVOFLURANE [Concomitant]
     Active Substance: SEVOFLURANE
     Indication: Induction of anaesthesia

REACTIONS (2)
  - Neuromuscular block prolonged [Recovered/Resolved]
  - Accidental overdose [Recovered/Resolved]
